FAERS Safety Report 20230537 (Version 3)
Quarter: 2023Q2

REPORT INFORMATION
  Report Type: Report from Study
  Country: US (occurrence: US)
  Receive Date: 20211227
  Receipt Date: 20230512
  Transmission Date: 20230721
  Serious: Yes (Hospitalization, Other)
  Sender: FDA-Public Use
  Company Number: US-ACADIA PHARMACEUTICALS INC.-ACA-2021-PIM-004350

PATIENT
  Age: 71 Year
  Sex: Male

DRUGS (23)
  1. NUPLAZID [Suspect]
     Active Substance: PIMAVANSERIN TARTRATE
     Indication: Parkinson^s disease psychosis
     Dosage: 34 MILLIGRAM, QD
     Route: 048
     Dates: start: 20211015, end: 20211214
  2. NUPLAZID [Suspect]
     Active Substance: PIMAVANSERIN TARTRATE
     Indication: Hallucination
     Dosage: 34 MILLIGRAM, QD
     Route: 048
  3. NUPLAZID [Suspect]
     Active Substance: PIMAVANSERIN TARTRATE
     Indication: Delusion
  4. CARBIDOPA\LEVODOPA [Suspect]
     Active Substance: CARBIDOPA\LEVODOPA
     Dosage: UNK
  5. ASPIRIN [Concomitant]
     Active Substance: ASPIRIN
  6. BACLOFEN [Concomitant]
     Active Substance: BACLOFEN
  7. TAMSULOSIN [Concomitant]
     Active Substance: TAMSULOSIN
  8. SENNA LEAF [Concomitant]
     Active Substance: SENNA LEAF
  9. LEXAPRO [Concomitant]
     Active Substance: ESCITALOPRAM OXALATE
  10. MEMANTINE [Concomitant]
     Active Substance: MEMANTINE
  11. LORAZEPAM [Concomitant]
     Active Substance: LORAZEPAM
  12. RIVASTIGMINE [Concomitant]
     Active Substance: RIVASTIGMINE
  13. MINERALS\VITAMINS [Concomitant]
     Active Substance: MINERALS\VITAMINS
  14. FINASTERIDE [Concomitant]
     Active Substance: FINASTERIDE
  15. BUSPIRONE [Concomitant]
     Active Substance: BUSPIRONE HYDROCHLORIDE
  16. OMEPRAZOLE [Concomitant]
     Active Substance: OMEPRAZOLE
  17. DIVALPROEX SODIUM [Concomitant]
     Active Substance: DIVALPROEX SODIUM
  18. RASAGILINE [Concomitant]
     Active Substance: RASAGILINE
  19. DOXYCYCLINE [Concomitant]
     Active Substance: DOXYCYCLINE
  20. ATROPINE [Concomitant]
     Active Substance: ATROPINE
  21. LIPITOR [Concomitant]
     Active Substance: ATORVASTATIN CALCIUM
  22. ISOSORBIDE [Concomitant]
     Active Substance: ISOSORBIDE
  23. TOPROLOL AM [Concomitant]

REACTIONS (6)
  - Cardiac failure congestive [Unknown]
  - Psychotic disorder [Unknown]
  - Motor dysfunction [Unknown]
  - Product dose omission issue [Unknown]
  - Disorientation [Unknown]
  - Peripheral swelling [Unknown]

NARRATIVE: CASE EVENT DATE: 20211001
